FAERS Safety Report 4287213-7 (Version None)
Quarter: 2004Q1

REPORT INFORMATION
  Report Type: 
  Country: None (occurrence: None)
  Receive Date: 20040126
  Receipt Date: 20031006
  Transmission Date: 20041129
  Serious: No
  Sender: FDA-Public Use
  Company Number: USA031049190

PATIENT
  Age: 72 Year
  Sex: Female

DRUGS (3)
  1. FORTEO [Suspect]
     Dates: start: 20030930
  2. METHADONE HCL [Concomitant]
  3. LORTAB [Concomitant]

REACTIONS (1)
  - PAIN IN EXTREMITY [None]
